FAERS Safety Report 23839295 (Version 1)
Quarter: 2024Q2

REPORT INFORMATION
  Report Type: Spontaneous
  Country: DK (occurrence: DK)
  Receive Date: 20240509
  Receipt Date: 20240509
  Transmission Date: 20240716
  Serious: Yes (Other)
  Sender: FDA-Public Use
  Company Number: None

PATIENT
  Age: 70 Year
  Sex: Male

DRUGS (2)
  1. INREBIC [Suspect]
     Active Substance: FEDRATINIB HYDROCHLORIDE
     Indication: Myelofibrosis
     Dosage: STOP TREATMENT ON AN UNKNOWN DATE IN 2023.
     Route: 048
     Dates: start: 20230210
  2. INREBIC [Suspect]
     Active Substance: FEDRATINIB HYDROCHLORIDE
     Dosage: START TREATMENT AGAIN ON AN UNKNOWN DATE IN 2023.
     Route: 048
     Dates: start: 2023, end: 20231023

REACTIONS (2)
  - Sensory disturbance [Unknown]
  - Peripheral sensorimotor neuropathy [Not Recovered/Not Resolved]

NARRATIVE: CASE EVENT DATE: 20230301
